FAERS Safety Report 18360724 (Version 1)
Quarter: 2020Q4

REPORT INFORMATION
  Report Type: Report from Study
  Country: AR (occurrence: AR)
  Receive Date: 20201008
  Receipt Date: 20201008
  Transmission Date: 20210114
  Serious: Yes (Other)
  Sender: FDA-Public Use
  Company Number: NVSC2020AR269596

PATIENT
  Age: 82 Year
  Sex: Female

DRUGS (1)
  1. ENTRESTO [Suspect]
     Active Substance: SACUBITRIL\VALSARTAN
     Indication: CARDIAC DISORDER
     Dosage: 50 MG, UNKNOWN
     Route: 065
     Dates: start: 20200916, end: 20200920

REACTIONS (13)
  - Nausea [Unknown]
  - Feeling abnormal [Unknown]
  - Asthenia [Not Recovered/Not Resolved]
  - Erysipelas [Unknown]
  - Burning sensation [Not Recovered/Not Resolved]
  - Cardiac disorder [Unknown]
  - Malaise [Unknown]
  - Condition aggravated [Unknown]
  - Gastrointestinal disorder [Unknown]
  - Abdominal discomfort [Not Recovered/Not Resolved]
  - Functional gastrointestinal disorder [Unknown]
  - Off label use [Unknown]
  - Fatigue [Unknown]
